FAERS Safety Report 11159263 (Version 1)
Quarter: 2015Q2

REPORT INFORMATION
  Report Type: Spontaneous
  Country: US (occurrence: None)
  Receive Date: 20150601
  Receipt Date: 20150601
  Transmission Date: 20150821
  Serious: No
  Sender: FDA-Public Use
  Company Number: None

PATIENT
  Age: 36 Year
  Sex: Female
  Weight: 67.13 kg

DRUGS (4)
  1. HYDROCODONE [Suspect]
     Active Substance: HYDROCODONE
     Indication: INTERVERTEBRAL DISC DEGENERATION
     Dosage: TAKE 2-EVERY 6 HOURS
  2. HYDROCODONE [Suspect]
     Active Substance: HYDROCODONE
     Indication: SPONDYLITIS
     Dosage: TAKE 2-EVERY 6 HOURS
  3. HYDROCODONE [Suspect]
     Active Substance: HYDROCODONE
     Indication: TENDONITIS
     Dosage: TAKE 2-EVERY 6 HOURS
  4. IBUPROFEN. [Concomitant]
     Active Substance: IBUPROFEN

REACTIONS (6)
  - Diarrhoea [None]
  - Drug ineffective [None]
  - Product quality issue [None]
  - Product substitution issue [None]
  - Drug withdrawal syndrome [None]
  - Heart rate increased [None]

NARRATIVE: CASE EVENT DATE: 20150525
